FAERS Safety Report 13590124 (Version 1)
Quarter: 2017Q2

REPORT INFORMATION
  Report Type: Spontaneous
  Country: US (occurrence: US)
  Receive Date: 20170524
  Receipt Date: 20170524
  Transmission Date: 20170830
  Serious: Yes (Other)
  Sender: FDA-Public Use
  Company Number: None

PATIENT
  Age: 3 Year
  Sex: Male
  Weight: 17.1 kg

DRUGS (1)
  1. CANTHACUR PS [Suspect]
     Active Substance: CANTHARIDIN\PODOPHYLLUM\SALICYLIC ACID
     Indication: MOLLUSCUM CONTAGIOSUM
     Dates: start: 20161229, end: 20170112

REACTIONS (6)
  - Crying [None]
  - Blister [None]
  - Thermal burn [None]
  - Skin discolouration [None]
  - Screaming [None]
  - Pain [None]

NARRATIVE: CASE EVENT DATE: 20170112
